FAERS Safety Report 6012121-0 (Version None)
Quarter: 2008Q4

REPORT INFORMATION
  Report Type: 
  Country: None (occurrence: None)
  Receive Date: 20081218
  Receipt Date: 20011212
  Transmission Date: 20090506
  Serious: No
  Sender: FDA-Public Use
  Company Number: US-ABBOTT-08P-163-0444588-00

PATIENT
  Sex: Female

DRUGS (3)
  1. MERIDIA [Suspect]
     Indication: DRUG USE FOR UNKNOWN INDICATION
     Route: 048
  2. MERIDIA [Suspect]
  3. MERIDIA [Suspect]

REACTIONS (3)
  - CONSTIPATION [None]
  - COUGH [None]
  - INSOMNIA [None]
